FAERS Safety Report 12043897 (Version 16)
Quarter: 2016Q4

REPORT INFORMATION
  Report Type: Report from Study
  Country: CA (occurrence: CA)
  Receive Date: 20160208
  Receipt Date: 20161221
  Transmission Date: 20170206
  Serious: Yes (Hospitalization, Other)
  Sender: FDA-Public Use
  Company Number: CA-ROCHE-1693489

PATIENT
  Age: 57 Year
  Sex: Female
  Weight: 72 kg

DRUGS (11)
  1. OMEPRAZOLE. [Concomitant]
     Active Substance: OMEPRAZOLE
  2. ACTEMRA [Suspect]
     Active Substance: TOCILIZUMAB
     Indication: RHEUMATOID ARTHRITIS
     Route: 042
     Dates: start: 20151210
  3. METHOTREXATE. [Concomitant]
     Active Substance: METHOTREXATE
  4. PREDNISONE. [Concomitant]
     Active Substance: PREDNISONE
  5. NAPROXEN. [Concomitant]
     Active Substance: NAPROXEN
  6. LEUCOVORIN. [Concomitant]
     Active Substance: LEUCOVORIN
  7. ACTEMRA [Suspect]
     Active Substance: TOCILIZUMAB
     Route: 042
     Dates: start: 20160926
  8. ALENDRONATE [Concomitant]
     Active Substance: ALENDRONATE SODIUM
  9. PLAQUENIL [Concomitant]
     Active Substance: HYDROXYCHLOROQUINE SULFATE
  10. METFORMIN [Suspect]
     Active Substance: METFORMIN HYDROCHLORIDE
     Indication: DIABETES MELLITUS
     Route: 065
     Dates: end: 2016
  11. NOVO-GESIC (CANADA) [Concomitant]

REACTIONS (35)
  - Fatigue [Recovering/Resolving]
  - Bronchitis [Unknown]
  - Blood pressure diastolic increased [Unknown]
  - Infusion related reaction [Recovering/Resolving]
  - Pain [Unknown]
  - Cough [Not Recovered/Not Resolved]
  - Gastrointestinal disorder [Recovered/Resolved]
  - Poor venous access [Unknown]
  - Nausea [Unknown]
  - Oral pain [Not Recovered/Not Resolved]
  - Blood pressure systolic increased [Not Recovered/Not Resolved]
  - Diabetes mellitus [Not Recovered/Not Resolved]
  - Headache [Recovered/Resolved]
  - Influenza [Recovered/Resolved]
  - Anxiety [Unknown]
  - Stress [Unknown]
  - Diarrhoea [Not Recovered/Not Resolved]
  - Tooth fracture [Unknown]
  - Pain in extremity [Recovered/Resolved]
  - Musculoskeletal pain [Not Recovered/Not Resolved]
  - Oropharyngeal pain [Not Recovered/Not Resolved]
  - Blood pressure fluctuation [Unknown]
  - Vomiting [Recovered/Resolved]
  - Poor quality sleep [Unknown]
  - Arthralgia [Unknown]
  - Arthritis [Unknown]
  - Pain [Not Recovered/Not Resolved]
  - Heart rate increased [Unknown]
  - Musculoskeletal pain [Recovered/Resolved]
  - Hot flush [Unknown]
  - Arthralgia [Not Recovered/Not Resolved]
  - Road traffic accident [Unknown]
  - Nausea [Recovered/Resolved]
  - Contusion [Unknown]
  - Headache [Unknown]

NARRATIVE: CASE EVENT DATE: 2016
